FAERS Safety Report 6215869-8 (Version None)
Quarter: 2009Q2

REPORT INFORMATION
  Report Type: 
  Country: None (occurrence: None)
  Receive Date: 20090605
  Receipt Date: 20090528
  Transmission Date: 20091009
  Serious: Yes (Other)
  Sender: FDA-Public Use
  Company Number: CA-JNJFOC-20090205404

PATIENT
  Sex: Female
  Weight: 64.2 kg

DRUGS (9)
  1. REMICADE [Suspect]
     Indication: RHEUMATOID ARTHRITIS
     Dosage: 45 TOTAL INFUSIONS
     Route: 042
  2. AZATHIOPRINE [Concomitant]
  3. RANITIDINE [Concomitant]
  4. NORVASC [Concomitant]
  5. AVAPRO [Concomitant]
  6. BUDESONIDE [Concomitant]
  7. ERGOTRATE [Concomitant]
  8. CRESTOR [Concomitant]
  9. SALBUMOL [Concomitant]

REACTIONS (2)
  - ANKLE FRACTURE [None]
  - FALL [None]
